FAERS Safety Report 9742270 (Version 2)
Quarter: 2013Q4

REPORT INFORMATION
  Report Type: Spontaneous
  Country: GR (occurrence: GR)
  Receive Date: 20131210
  Receipt Date: 20131210
  Transmission Date: 20140711
  Serious: Yes (Other)
  Sender: FDA-Public Use
  Company Number: GR-BAYER-2013-145299

PATIENT
  Age: 90 Year
  Sex: Female

DRUGS (2)
  1. CIPROXIN [Suspect]
     Indication: URINARY TRACT INFECTION
     Dosage: 500 MG, BID
     Route: 048
     Dates: start: 20131125
  2. CIPROXIN [Suspect]
     Indication: RESPIRATORY TRACT INFECTION

REACTIONS (2)
  - Sialoadenitis [Recovering/Resolving]
  - Ear pain [Recovering/Resolving]
